FAERS Safety Report 7384996-4 (Version None)
Quarter: 2011Q1

REPORT INFORMATION
  Report Type: 
  Country: None (occurrence: None)
  Receive Date: 20110323
  Receipt Date: 20110310
  Transmission Date: 20110831
  Serious: Yes (Hospitalization)
  Sender: FDA-Public Use
  Company Number: 8054002

PATIENT
  Sex: Female
  Weight: 125 kg

DRUGS (12)
  1. LEVOTHYROXINE [Concomitant]
  2. TRAZODONE [Concomitant]
  3. LYRICA [Concomitant]
  4. MULTI-VITAMINS [Concomitant]
  5. LASIX [Concomitant]
  6. VERAPAMIL [Concomitant]
  7. CERTOLIZUMAB PEGOL [Suspect]
     Indication: RHEUMATOID ARTHRITIS
     Dosage: 200 MG 1X/2 WEEKS, - NR OF DOSES:2 SUBCUTANEOUS, 200 MG 1X/2 WEEKS, - NR OF DOSES : 10 SUBCUTANEOUS
     Route: 058
     Dates: start: 20090209, end: 20090702
  8. CERTOLIZUMAB PEGOL [Suspect]
     Indication: RHEUMATOID ARTHRITIS
     Dosage: 200 MG 1X/2 WEEKS, - NR OF DOSES:2 SUBCUTANEOUS, 200 MG 1X/2 WEEKS, - NR OF DOSES : 10 SUBCUTANEOUS
     Route: 058
     Dates: start: 20081230, end: 20090127
  9. ATENOLOL [Concomitant]
  10. EFFEXOR [Concomitant]
  11. METHOTREXATE [Concomitant]
  12. GLUCOPHAGE [Concomitant]

REACTIONS (7)
  - NECROSIS [None]
  - ABDOMINAL PAIN [None]
  - WOUND DEHISCENCE [None]
  - ENTEROBACTER TEST POSITIVE [None]
  - BLOOD PRESSURE SYSTOLIC INCREASED [None]
  - OXYGEN SATURATION DECREASED [None]
  - POSTOPERATIVE WOUND INFECTION [None]
